FAERS Safety Report 4304701-5 (Version None)
Quarter: 2004Q1

REPORT INFORMATION
  Report Type: 
  Country: None (occurrence: None)
  Receive Date: 20040226
  Receipt Date: 20031119
  Transmission Date: 20041129
  Serious: Yes (Other)
  Sender: FDA-Public Use
  Company Number: US-GLAXOSMITHKLINE-A0440389A

PATIENT
  Age: 42 Year
  Sex: Female
  Weight: 61.4 kg

DRUGS (4)
  1. WELLBUTRIN [Suspect]
     Indication: DEPRESSION
     Dosage: 300MG PER DAY
     Route: 048
     Dates: start: 20031008, end: 20031107
  2. ATIVAN [Concomitant]
     Dosage: .5MG TWICE PER DAY
     Route: 048
     Dates: start: 19980101
  3. AMBIEN [Concomitant]
     Dosage: 5MG AT NIGHT
     Route: 048
  4. NORTRIPTYLINE HCL [Concomitant]
     Dosage: 50MG AT NIGHT
     Route: 048
     Dates: start: 19950101

REACTIONS (1)
  - GRAND MAL CONVULSION [None]
